FAERS Safety Report 17075769 (Version 1)
Quarter: 2019Q4

REPORT INFORMATION
  Report Type: Report from Study
  Country: CA (occurrence: CA)
  Receive Date: 20191126
  Receipt Date: 20191126
  Transmission Date: 20200122
  Serious: Yes (Hospitalization, Other)
  Sender: FDA-Public Use
  Company Number: CA-ROCHE-2097431

PATIENT
  Age: 50 Year
  Sex: Male
  Weight: 100 kg

DRUGS (15)
  1. CARBOPLATIN. [Concomitant]
     Active Substance: CARBOPLATIN
     Indication: CHEMOTHERAPY
  2. PANTOLOC [PANTOPRAZOLE] [Concomitant]
     Active Substance: PANTOPRAZOLE SODIUM
     Route: 065
     Dates: start: 20171220
  3. BENADRYL [Concomitant]
     Active Substance: DIPHENHYDRAMINE HYDROCHLORIDE
  4. GABAPENTIN. [Concomitant]
     Active Substance: GABAPENTIN
     Route: 065
     Dates: start: 20171220
  5. AVASTIN [Suspect]
     Active Substance: BEVACIZUMAB
     Route: 042
  6. TYLENOL [Concomitant]
     Active Substance: ACETAMINOPHEN
     Route: 048
  7. DECADRON [Concomitant]
     Active Substance: DEXAMETHASONE
     Route: 065
     Dates: start: 20171220
  8. SYNTHROID [Concomitant]
     Active Substance: LEVOTHYROXINE SODIUM
     Route: 065
     Dates: start: 20171220
  9. DIPHENHYDRAMINE. [Concomitant]
     Active Substance: DIPHENHYDRAMINE
     Route: 048
  10. AVASTIN [Suspect]
     Active Substance: BEVACIZUMAB
     Dosage: INFUSION #4
     Route: 042
     Dates: start: 20180410
  11. SOLU-MEDROL [Concomitant]
     Active Substance: METHYLPREDNISOLONE SODIUM SUCCINATE
     Route: 042
  12. REMERON [Concomitant]
     Active Substance: MIRTAZAPINE
     Route: 065
     Dates: start: 201801
  13. AVASTIN [Suspect]
     Active Substance: BEVACIZUMAB
     Indication: BRAIN NEOPLASM MALIGNANT
     Route: 042
     Dates: start: 20180309, end: 20180808
  14. VITAMIN B12 [VITAMIN B12 NOS] [Concomitant]
     Active Substance: CYANOCOBALAMIN
     Route: 065
     Dates: start: 20171220
  15. FOLIC ACID. [Concomitant]
     Active Substance: FOLIC ACID
     Route: 065
     Dates: start: 20171220

REACTIONS (37)
  - Hemiplegia [Unknown]
  - Influenza [Unknown]
  - Cough [Unknown]
  - Eosinophil count decreased [Unknown]
  - Ill-defined disorder [Unknown]
  - Cancer fatigue [Not Recovered/Not Resolved]
  - Wheelchair user [Unknown]
  - Pyrexia [Recovering/Resolving]
  - Haemoglobin decreased [Not Recovered/Not Resolved]
  - Mean cell haemoglobin increased [Not Recovered/Not Resolved]
  - Platelet count decreased [Unknown]
  - Oxygen saturation decreased [Unknown]
  - Oedema [Unknown]
  - Pneumonia [Unknown]
  - Gait inability [Unknown]
  - Haematocrit decreased [Unknown]
  - Hemiparesis [Unknown]
  - Blood pressure increased [Unknown]
  - Monocyte count increased [Unknown]
  - Weight increased [Unknown]
  - Depressed mood [Unknown]
  - White blood cell count increased [Recovered/Resolved]
  - Anisocytosis [Unknown]
  - Red blood cell count decreased [Not Recovered/Not Resolved]
  - Lymphocyte count decreased [Not Recovered/Not Resolved]
  - Red cell distribution width increased [Not Recovered/Not Resolved]
  - Arthralgia [Unknown]
  - Asthenia [Unknown]
  - Back pain [Unknown]
  - Neutrophil count increased [Unknown]
  - Blood pressure fluctuation [Unknown]
  - Heart rate increased [Unknown]
  - General physical condition abnormal [Unknown]
  - Mean cell volume increased [Not Recovered/Not Resolved]
  - Macrocytosis [Unknown]
  - Polychromasia [Unknown]
  - Body temperature increased [Unknown]

NARRATIVE: CASE EVENT DATE: 20180312
